FAERS Safety Report 5332854-9 (Version None)
Quarter: 2007Q2

REPORT INFORMATION
  Report Type: 
  Country: None (occurrence: None)
  Receive Date: 20070521
  Receipt Date: 20070507
  Transmission Date: 20071010
  Serious: Yes (Other)
  Sender: FDA-Public Use
  Company Number: 2007000511

PATIENT
  Age: 80 Year
  Sex: Female

DRUGS (4)
  1. TARCEVA [Suspect]
     Indication: LUNG ADENOCARCINOMA
     Dosage: 150 MG, ORAL
     Route: 048
     Dates: start: 20060728
  2. TRIMETAZIDINE (TRIMETAZIDINE) [Concomitant]
  3. GAVISCON [Concomitant]
  4. FOSAMAX [Concomitant]

REACTIONS (2)
  - CELL DEATH [None]
  - CHOLESTASIS [None]
